FAERS Safety Report 19586636 (Version 2)
Quarter: 2021Q3

REPORT INFORMATION
  Report Type: Spontaneous
  Country: FR (occurrence: FR)
  Receive Date: 20210720
  Receipt Date: 20210819
  Transmission Date: 20211014
  Serious: Yes (Other)
  Sender: FDA-Public Use
  Company Number: NVSC2021FR157438

PATIENT
  Age: 78 Year
  Sex: Male

DRUGS (4)
  1. INEXIUM [Suspect]
     Active Substance: ESOMEPRAZOLE
     Indication: PRODUCT USED FOR UNKNOWN INDICATION
     Dosage: UNK
     Route: 065
  2. LISINOPRIL. [Suspect]
     Active Substance: LISINOPRIL
     Indication: PRODUCT USED FOR UNKNOWN INDICATION
     Dosage: 20 MG, QD
     Route: 065
  3. VERAPAMIL HCL SANDOZ [Suspect]
     Active Substance: VERAPAMIL HYDROCHLORIDE
     Indication: OBSTRUCTION GASTRIC
     Dosage: 120 MG, QD
     Route: 065
     Dates: start: 20210610, end: 20210710
  4. VERAPAMIL HCL SANDOZ [Suspect]
     Active Substance: VERAPAMIL HYDROCHLORIDE
     Indication: TACHYCARDIA

REACTIONS (6)
  - Vertigo [Unknown]
  - Hypotension [Recovered/Resolved]
  - Dizziness [Unknown]
  - Arthralgia [Unknown]
  - Angina pectoris [Unknown]
  - Muscular weakness [Unknown]
